FAERS Safety Report 13563823 (Version 2)
Quarter: 2019Q1

REPORT INFORMATION
  Report Type: Report from Study
  Country: CA (occurrence: CA)
  Receive Date: 20170519
  Receipt Date: 20190228
  Transmission Date: 20190417
  Serious: Yes (Hospitalization)
  Sender: FDA-Public Use
  Company Number: CA-JNJFOC-20170515238

PATIENT
  Age: 69 Year
  Sex: Female

DRUGS (3)
  1. ARAVA [Concomitant]
     Active Substance: LEFLUNOMIDE
     Route: 048
  2. SULFASALAZINE. [Concomitant]
     Active Substance: SULFASALAZINE
     Route: 048
  3. SIMPONI [Suspect]
     Active Substance: GOLIMUMAB
     Indication: PSORIATIC ARTHROPATHY
     Route: 058
     Dates: start: 20170426

REACTIONS (5)
  - Restless legs syndrome [Unknown]
  - Muscle spasms [Recovering/Resolving]
  - Pneumonia bacterial [Recovering/Resolving]
  - Cough [Recovering/Resolving]
  - Tonsillitis [Recovering/Resolving]

NARRATIVE: CASE EVENT DATE: 20170504
